FAERS Safety Report 21904859 (Version 3)
Quarter: 2023Q2

REPORT INFORMATION
  Report Type: Spontaneous
  Country: DE (occurrence: DE)
  Receive Date: 20230124
  Receipt Date: 20230602
  Transmission Date: 20230722
  Serious: Yes (Hospitalization, Other)
  Sender: FDA-Public Use
  Company Number: DE-SANOFI-01450657

PATIENT
  Age: 53 Year
  Sex: Female

DRUGS (6)
  1. PLAVIX [Suspect]
     Active Substance: CLOPIDOGREL BISULFATE
     Indication: Product used for unknown indication
  2. MAGNESIUM [Concomitant]
     Active Substance: MAGNESIUM
     Dosage: UNK
     Dates: start: 1998
  3. ASPIRIN [Concomitant]
     Active Substance: ASPIRIN
     Dosage: UNK
     Dates: start: 20210721
  4. PRASUGREL [Concomitant]
     Active Substance: PRASUGREL
     Dosage: UNK
     Dates: start: 20210721
  5. CANDESARTAN [Concomitant]
     Active Substance: CANDESARTAN
     Dosage: UNK
     Dates: start: 20210821, end: 20220629
  6. ROSUVASTATIN [Concomitant]
     Active Substance: ROSUVASTATIN
     Dosage: UNK
     Dates: start: 20220307, end: 20220629

REACTIONS (1)
  - Acute coronary syndrome [Recovered/Resolved]

NARRATIVE: CASE EVENT DATE: 20220411
